FAERS Safety Report 8343852-5 (Version None)
Quarter: 2012Q2

REPORT INFORMATION
  Report Type: 
  Country: None (occurrence: None)
  Receive Date: 20120508
  Receipt Date: 20120427
  Transmission Date: 20120825
  Serious: Yes (Hospitalization)
  Sender: FDA-Public Use
  Company Number: CA-JNJFOC-20120414375

PATIENT
  Sex: Female
  Weight: 70.5 kg

DRUGS (3)
  1. REMICADE [Suspect]
     Indication: CROHN'S DISEASE
     Route: 042
     Dates: start: 20091118
  2. IMURAN [Concomitant]
     Route: 065
  3. CONTRACEPTIVE [Concomitant]
     Route: 048

REACTIONS (1)
  - KNEE OPERATION [None]
